FAERS Safety Report 24934174 (Version 1)
Quarter: 2025Q1

REPORT INFORMATION
  Report Type: Report from Study
  Country: US (occurrence: US)
  Receive Date: 20250206
  Receipt Date: 20250206
  Transmission Date: 20250409
  Serious: No
  Sender: EXELIXIS
  Company Number: US-EXELIXIS-EXL-2024-002493

PATIENT
  Sex: Male

DRUGS (2)
  1. CABOMETYX [Suspect]
     Active Substance: CABOZANTINIB S-MALATE
     Indication: Renal cancer
     Dosage: 60 MG, QD
     Route: 048
  2. CABOMETYX [Suspect]
     Active Substance: CABOZANTINIB S-MALATE
     Dosage: 40 MG, QD
     Route: 048

REACTIONS (11)
  - Glossodynia [Unknown]
  - Pain in extremity [Unknown]
  - Stomatitis [Unknown]
  - Dyspnoea [Unknown]
  - Fatigue [Unknown]
  - Yawning [Unknown]
  - Hyperaesthesia teeth [Unknown]
  - Glossitis [Unknown]
  - Decreased appetite [Unknown]
  - Arthralgia [Unknown]
  - Dry mouth [Unknown]
